FAERS Safety Report 11888940 (Version 1)
Quarter: 2016Q1

REPORT INFORMATION
  Report Type: Spontaneous
  Country: US (occurrence: None)
  Receive Date: 20160104
  Receipt Date: 20160104
  Transmission Date: 20160526
  Serious: No
  Sender: FDA-Public Use
  Company Number: None

PATIENT
  Age: 68 Year
  Sex: Female
  Weight: 61.24 kg

DRUGS (5)
  1. KIRKLAND SIGNATURE ALLER TEC ALLERGY [Suspect]
     Active Substance: CETIRIZINE HYDROCHLORIDE
     Indication: RHINITIS ALLERGIC
     Route: 048
  2. CALCIUM [Concomitant]
     Active Substance: CALCIUM
  3. BRISDELLE [Concomitant]
     Active Substance: PAROXETINE MESYLATE
  4. ASA [Concomitant]
     Active Substance: ASPIRIN
  5. FE [Concomitant]
     Active Substance: IRON

REACTIONS (2)
  - Drug withdrawal syndrome [None]
  - Pruritus [None]

NARRATIVE: CASE EVENT DATE: 20151231
